FAERS Safety Report 12560896 (Version 1)
Quarter: 2016Q3

REPORT INFORMATION
  Report Type: Spontaneous
  Country: IT (occurrence: IT)
  Receive Date: 20160715
  Receipt Date: 20160715
  Transmission Date: 20161109
  Serious: Yes (Other)
  Sender: FDA-Public Use
  Company Number: IT-TEVA-661600ACC

PATIENT
  Age: 82 Year
  Sex: Female

DRUGS (3)
  1. LOBIDIUR - 5 MG/12.5 MG COMPRESSE RIVESTITE CON FILM [Concomitant]
     Indication: HYPERTENSION
     Dosage: 1 DF
     Route: 048
  2. ONCO CARBIDE - 500 MG CAPSULE RIGIDE [Concomitant]
     Indication: THROMBOCYTOSIS
     Dosage: 1 DF
     Route: 048
  3. AMOXICILLIN TRIHYDRATE [Suspect]
     Active Substance: AMOXICILLIN
     Indication: PRODUCT USED FOR UNKNOWN INDICATION
     Dosage: 1000 MILLIGRAM DAILY;
     Route: 048
     Dates: start: 20160407, end: 20160407

REACTIONS (4)
  - Presyncope [Recovered/Resolved]
  - Pruritus [Recovered/Resolved]
  - Vomiting [Recovered/Resolved]
  - Rash generalised [Recovered/Resolved]

NARRATIVE: CASE EVENT DATE: 20160407
